FAERS Safety Report 19213730 (Version 3)
Quarter: 2021Q4

REPORT INFORMATION
  Report Type: Report from Study
  Country: US (occurrence: None)
  Receive Date: 20210504
  Receipt Date: 20211115
  Transmission Date: 20220303
  Serious: Yes (Other)
  Sender: FDA-Public Use
  Company Number: US-MERCK HEALTHCARE KGAA-9235522

PATIENT
  Age: 64 Year
  Sex: Female

DRUGS (1)
  1. REBIF [Suspect]
     Active Substance: INTERFERON BETA-1A
     Indication: Multiple sclerosis
     Dosage: REBI-JECT MINI
     Route: 058
     Dates: start: 20021219

REACTIONS (8)
  - Osteoarthritis [Unknown]
  - Pulmonary mass [Unknown]
  - Melanocytic naevus [Unknown]
  - Injection site erythema [Recovered/Resolved]
  - Chronic obstructive pulmonary disease [Unknown]
  - Vertigo [Recovered/Resolved]
  - Blood pressure increased [Unknown]
  - Balance disorder [Unknown]

NARRATIVE: CASE EVENT DATE: 20190501
